FAERS Safety Report 8960756 (Version 2)
Quarter: 2013Q1

REPORT INFORMATION
  Report Type: Spontaneous
  Country: DE (occurrence: DE)
  Receive Date: 20121213
  Receipt Date: 20130117
  Transmission Date: 20140127
  Serious: Yes (Other)
  Sender: FDA-Public Use
  Company Number: PHHY2012DE112474

PATIENT
  Sex: Male

DRUGS (6)
  1. TOBI PODHALER [Suspect]
     Indication: CYSTIC FIBROSIS
     Dosage: 112 MG, BID
     Dates: start: 20121023, end: 20121030
  2. VIANI [Concomitant]
     Indication: CYSTIC FIBROSIS
     Dosage: UNK UKN, UNK
     Dates: start: 2007
  3. NACL [Concomitant]
     Indication: CYSTIC FIBROSIS
     Dosage: UNK UKN, TID
     Dates: start: 2009
  4. SALBUTAMOL [Concomitant]
     Indication: CYSTIC FIBROSIS
     Dosage: UNK UKN, TID
     Dates: start: 2009
  5. SPIRIVA [Concomitant]
     Indication: CYSTIC FIBROSIS
     Dosage: 18 MG, UNK
     Dates: start: 201204
  6. AZITHROMYCIN [Concomitant]
     Dosage: 500 MG, (THREE TIMES PER WEEK)
     Route: 048
     Dates: start: 2003

REACTIONS (2)
  - Aphonia [Recovered/Resolved]
  - Dysphonia [Recovered/Resolved]
